FAERS Safety Report 8230440-4 (Version None)
Quarter: 2012Q1

REPORT INFORMATION
  Report Type: 
  Country: None (occurrence: None)
  Receive Date: 20120323
  Receipt Date: 20120316
  Transmission Date: 20120608
  Serious: Yes (Hospitalization)
  Sender: FDA-Public Use
  Company Number: US-BAYER-2011-081853

PATIENT
  Age: 24 Year
  Sex: Female
  Weight: 102.4 kg

DRUGS (1)
  1. YAZ [Suspect]
     Dosage: UNK
     Route: 048
     Dates: start: 20080812, end: 20090407

REACTIONS (4)
  - CHOLECYSTITIS [None]
  - PAIN [None]
  - INJURY [None]
  - GALLBLADDER INJURY [None]
